FAERS Safety Report 10781641 (Version 1)
Quarter: 2015Q1

REPORT INFORMATION
  Report Type: Spontaneous
  Country: US (occurrence: None)
  Receive Date: 20150209
  Receipt Date: 20150209
  Transmission Date: 20150721
  Serious: Yes (Life-Threatening, Hospitalization, Disabling)
  Sender: FDA-Public Use
  Company Number: None

PATIENT
  Age: 78 Year
  Sex: Female
  Weight: 100 kg

DRUGS (6)
  1. LOSARTAN [Concomitant]
     Active Substance: LOSARTAN
  2. FLONASE [Concomitant]
     Active Substance: FLUTICASONE PROPIONATE
  3. MVI [Concomitant]
     Active Substance: VITAMINS
  4. CALCIUM-VITAMIN D [Concomitant]
  5. RIVAROXABAN 20MG [Suspect]
     Active Substance: RIVAROXABAN
     Indication: ATRIAL FIBRILLATION
     Route: 048
  6. VITAMIN D [Concomitant]
     Active Substance: CHOLECALCIFEROL

REACTIONS (6)
  - Cerebral haemorrhage [None]
  - Headache [None]
  - Nausea [None]
  - Hemianopia [None]
  - Brain midline shift [None]
  - Hemiparesis [None]

NARRATIVE: CASE EVENT DATE: 20141215
